FAERS Safety Report 17804465 (Version 1)
Quarter: 2020Q2

REPORT INFORMATION
  Report Type: Report from Study
  Country: GB (occurrence: GB)
  Receive Date: 20200519
  Receipt Date: 20200519
  Transmission Date: 20200714
  Serious: Yes (Other)
  Sender: FDA-Public Use
  Company Number: GB-MYLANLABS-2020M1048904

PATIENT

DRUGS (2)
  1. EMTRICITABINE/TENOFOVIR DISOPROXIL FUMARATE [Suspect]
     Active Substance: EMTRICITABINE\TENOFOVIR DISOPROXIL FUMARATE
     Indication: PRODUCT USED FOR UNKNOWN INDICATION
     Dosage: 500 MILLIGRAM, ONCE A DAY (SECOND TRIMESTER)
     Route: 064
     Dates: start: 20200413
  2. TIVICAY [Suspect]
     Active Substance: DOLUTEGRAVIR SODIUM
     Indication: PRODUCT USED FOR UNKNOWN INDICATION
     Dosage: 50 MILLIGRAM, ONCE A DAY (SECOND TRIMESTER)
     Route: 064
     Dates: start: 20200413

REACTIONS (6)
  - Pleural effusion [Unknown]
  - Brain oedema [Unknown]
  - Oedema [Unknown]
  - Localised oedema [Unknown]
  - Foetal exposure during pregnancy [Unknown]
  - Cystic lymphangioma [Unknown]
